FAERS Safety Report 14021407 (Version 1)
Quarter: 2017Q3

REPORT INFORMATION
  Report Type: Spontaneous
  Country: US (occurrence: US)
  Receive Date: 20170928
  Receipt Date: 20170928
  Transmission Date: 20171128
  Serious: Yes (Other)
  Sender: FDA-Public Use
  Company Number: US-BAUSCH-BL-2017-028137

PATIENT
  Sex: Female
  Weight: 56.75 kg

DRUGS (3)
  1. TIMOLOL MALEATE OPHTHALMIC GEL FORMING SOLUTION [Suspect]
     Active Substance: TIMOLOL MALEATE
     Indication: GLAUCOMA
     Dosage: MORNING
     Route: 047
     Dates: start: 2011, end: 20170919
  2. LATANOPROST. [Concomitant]
     Active Substance: LATANOPROST
     Indication: PRODUCT USED FOR UNKNOWN INDICATION
     Route: 047
     Dates: start: 2011
  3. LISINOPRIL. [Concomitant]
     Active Substance: LISINOPRIL
     Indication: PRODUCT USED FOR UNKNOWN INDICATION
     Route: 048

REACTIONS (3)
  - Aphasia [Unknown]
  - Speech sound disorder [None]
  - Dysphonia [Unknown]

NARRATIVE: CASE EVENT DATE: 2015
